FAERS Safety Report 26065341 (Version 4)
Quarter: 2025Q4

REPORT INFORMATION
  Report Type: Spontaneous
  Country: US (occurrence: US)
  Receive Date: 20251119
  Receipt Date: 20251202
  Transmission Date: 20260118
  Serious: No
  Sender: APELLIS PHARMACEUTICALS
  Company Number: US-APELLIS-2025-APL-0002163

PATIENT

DRUGS (1)
  1. EMPAVELI [Suspect]
     Active Substance: PEGCETACOPLAN
     Indication: C3 glomerulopathy
     Dosage: INFUSE 810MG (15ML) SUBCUTANEOUSLY TWICE WEEKLY AS DIRECTED.
     Route: 058
     Dates: start: 20250916

REACTIONS (15)
  - Infusion site papule [Unknown]
  - Hernia [Unknown]
  - Infusion site mass [Unknown]
  - Wrong technique in product usage process [Unknown]
  - Dermatitis contact [Unknown]
  - Abdominal distension [Unknown]
  - Infusion site haemorrhage [Unknown]
  - Nausea [Unknown]
  - Constipation [Unknown]
  - Incorrect product administration duration [Unknown]
  - Infusion site pain [Unknown]
  - Condition aggravated [Unknown]
  - Skin discolouration [Unknown]
  - Headache [Unknown]
  - Abdominal mass [Unknown]
